FAERS Safety Report 4356584-5 (Version None)
Quarter: 2004Q2

REPORT INFORMATION
  Report Type: 
  Country: None (occurrence: None)
  Receive Date: 20040507
  Receipt Date: 20040429
  Transmission Date: 20050107
  Serious: Yes (Hospitalization)
  Sender: FDA-Public Use
  Company Number: K200400658

PATIENT
  Age: 71 Year
  Sex: Male

DRUGS (4)
  1. ALTACE [Suspect]
     Indication: HYPERTENSION
     Dosage: 10 MG, QD, ORAL
     Route: 048
     Dates: end: 20040318
  2. SIMVASTATIN [Suspect]
     Indication: PROPHYLAXIS
     Dosage: 20 MG, QD, ORAL
     Route: 048
     Dates: end: 20040318
  3. ASPIRIN [Concomitant]
  4. XALACOM (TIMIOLOL MALEATE, LATANOPROST) [Concomitant]

REACTIONS (2)
  - DIZZINESS [None]
  - JAUNDICE [None]
